FAERS Safety Report 9179035 (Version 2)
Quarter: 2013Q2

REPORT INFORMATION
  Report Type: Spontaneous
  Country: JP (occurrence: JP)
  Receive Date: 20130321
  Receipt Date: 20130507
  Transmission Date: 20140414
  Serious: Yes (Death, Hospitalization)
  Sender: FDA-Public Use
  Company Number: JP-ROCHE-1152880

PATIENT
  Age: 71 Year
  Sex: Male
  Weight: 62 kg

DRUGS (13)
  1. AVASTIN [Suspect]
     Indication: COLON CANCER METASTATIC
     Route: 041
     Dates: start: 20120111, end: 20120928
  2. SODIUM BICARBONATE [Concomitant]
     Indication: PROPHYLAXIS
     Route: 048
     Dates: start: 20111207, end: 20120930
  3. URSO [Concomitant]
     Indication: PROPHYLAXIS
     Route: 048
     Dates: start: 20111207, end: 20120930
  4. MAGNESIUM OXIDE [Concomitant]
     Indication: PROPHYLAXIS
     Route: 048
     Dates: start: 20111207, end: 20120930
  5. PRIMPERAN (JAPAN) [Concomitant]
     Indication: PROPHYLAXIS
     Route: 048
     Dates: start: 20111207, end: 20120930
  6. LEVOFOLINATE [Concomitant]
     Indication: COLON CANCER METASTATIC
     Route: 041
     Dates: start: 20120111, end: 20120111
  7. LEVOFOLINATE [Concomitant]
     Indication: COLON CANCER METASTATIC
     Route: 041
     Dates: start: 20120125, end: 20120928
  8. ELPLAT [Concomitant]
     Indication: COLON CANCER METASTATIC
     Route: 041
     Dates: start: 20120111, end: 20120111
  9. IRINOTECAN HYDROCHLORIDE [Concomitant]
     Indication: COLON CANCER METASTATIC
     Route: 041
     Dates: start: 20120125, end: 20120928
  10. 5-FU [Concomitant]
     Indication: COLON CANCER METASTATIC
     Dosage: DOSAGE IS UNCERTAIN.
     Route: 040
     Dates: start: 20120111, end: 20120111
  11. 5-FU [Concomitant]
     Indication: COLON CANCER METASTATIC
     Dosage: DOSAGE IS UNCERTAIN.
     Route: 041
     Dates: start: 20120111, end: 201201
  12. 5-FU [Concomitant]
     Indication: COLON CANCER METASTATIC
     Route: 040
     Dates: start: 20120125, end: 20120928
  13. 5-FU [Concomitant]
     Indication: COLON CANCER METASTATIC
     Route: 041
     Dates: start: 20120125, end: 201209

REACTIONS (4)
  - Cerebral haemorrhage [Fatal]
  - General physical health deterioration [Fatal]
  - Metastases to central nervous system [Fatal]
  - Pneumonia [Recovered/Resolved]
